FAERS Safety Report 9374939 (Version 1)
Quarter: 2013Q2

REPORT INFORMATION
  Report Type: Spontaneous
  Country: US (occurrence: US)
  Receive Date: 20130628
  Receipt Date: 20130628
  Transmission Date: 20140414
  Serious: Yes (Life-Threatening, Hospitalization)
  Sender: FDA-Public Use
  Company Number: US-BAYER-2013-074114

PATIENT
  Age: 85 Year
  Sex: Male
  Weight: 106 kg

DRUGS (15)
  1. XARELTO [Suspect]
     Indication: DEEP VEIN THROMBOSIS
     Dosage: 15 MG, BID
     Route: 048
     Dates: start: 20121219, end: 20130107
  2. XARELTO [Suspect]
     Indication: THROMBOSIS PROPHYLAXIS
  3. ACETYLSALICYLIC ACID [Suspect]
     Indication: PRODUCT USED FOR UNKNOWN INDICATION
     Dosage: 325 MG, UNK
     Route: 065
  4. BETAPACE [Concomitant]
     Dosage: 80 MG, BID
  5. ACETAMINOPHEN [Concomitant]
     Indication: PAIN
     Dosage: 500 MG, QD
  6. DAYPRO [Concomitant]
     Dosage: 600 MG, BID
  7. NEURONTIN [Concomitant]
     Dosage: 300 MG, QID
     Route: 065
  8. FOLIC ACID [Concomitant]
     Dosage: 1 MG, UNK
  9. PARAFON FORTE [Concomitant]
     Dosage: 500 MG, TID
     Route: 065
  10. NEXIUM [Concomitant]
     Dosage: 40 MG, UNK
  11. VITAMIN E [Concomitant]
     Dosage: 400 DF, UNK
     Route: 065
  12. VYTORIN [Concomitant]
  13. XANAX [Concomitant]
     Dosage: .25 MG, BID
  14. NIASPAN [Concomitant]
  15. INDAPAMIDE [Concomitant]
     Dosage: 1.25 MG, UNK

REACTIONS (3)
  - Fall [Unknown]
  - Cervical vertebral fracture [Unknown]
  - Post procedural haemorrhage [Recovering/Resolving]
